FAERS Safety Report 6188773-1 (Version None)
Quarter: 2009Q2

REPORT INFORMATION
  Report Type: 
  Country: None (occurrence: None)
  Receive Date: 20090513
  Receipt Date: 20090507
  Transmission Date: 20091009
  Serious: Yes (Other)
  Sender: FDA-Public Use
  Company Number: US-MERCK-0905USA00964

PATIENT
  Age: 81 Year
  Sex: Female

DRUGS (3)
  1. TRUSOPT [Suspect]
     Indication: GLAUCOMA
     Route: 047
     Dates: start: 20090501, end: 20090502
  2. TIMOLOL [Concomitant]
     Route: 065
  3. XALATAN [Concomitant]
     Route: 065

REACTIONS (2)
  - BLINDNESS [None]
  - BURNING SENSATION [None]
